FAERS Safety Report 9018336 (Version 1)
Quarter: 2013Q1

REPORT INFORMATION
  Report Type: Spontaneous
  Country: US (occurrence: None)
  Receive Date: 20130111
  Receipt Date: 20130111
  Transmission Date: 20140127
  Serious: Yes (Hospitalization)
  Sender: FDA-Public Use
  Company Number: None

PATIENT
  Age: 88 Year
  Sex: Female
  Weight: 71.4 kg

DRUGS (18)
  1. COUMADIN [Suspect]
     Indication: ATRIAL FIBRILLATION
     Dosage: 3MG SUNDAYS PO
     Route: 048
  2. CLEOCIN [Concomitant]
  3. MECLIZINE [Concomitant]
  4. METHOCARBAMOL [Concomitant]
  5. LORTAB [Concomitant]
  6. NTG [Concomitant]
  7. ANTARA [Concomitant]
  8. INSULIN [Concomitant]
  9. LEVOTHYROXINE [Concomitant]
  10. LASIX [Concomitant]
  11. METOPROLOL [Concomitant]
  12. ALDACTONE [Concomitant]
  13. METAMUCIL [Concomitant]
  14. STOOL SOFTNER [Concomitant]
  15. FISH OIL [Concomitant]
  16. PRILOSEC [Concomitant]
  17. GABAPENTIN [Concomitant]
  18. APAP/DIPHENHYDRAMINE [Concomitant]

REACTIONS (6)
  - Upper gastrointestinal haemorrhage [None]
  - International normalised ratio increased [None]
  - Pancreatic carcinoma metastatic [None]
  - Upper respiratory tract infection [None]
  - Metastases to liver [None]
  - Bile duct obstruction [None]
